FAERS Safety Report 14327852 (Version 2)
Quarter: 2018Q4

REPORT INFORMATION
  Report Type: Spontaneous
  Country: US (occurrence: US)
  Receive Date: 20171227
  Receipt Date: 20181203
  Transmission Date: 20190204
  Serious: Yes (Death, Hospitalization, Other)
  Sender: FDA-Public Use
  Company Number: US-BRISTOL-MYERS SQUIBB COMPANY-BMS-2017-117263

PATIENT
  Age: 88 Year
  Sex: Male
  Weight: 90 kg

DRUGS (1)
  1. ELIQUIS [Suspect]
     Active Substance: APIXABAN
     Indication: PRODUCT USED FOR UNKNOWN INDICATION
     Dosage: 2.5 MG, BID
     Route: 048
     Dates: start: 201602

REACTIONS (10)
  - Ileus [Unknown]
  - Delirium [Unknown]
  - Atrial fibrillation [Unknown]
  - Acute kidney injury [Unknown]
  - Pneumonia [Unknown]
  - Cardio-respiratory arrest [Fatal]
  - Herpes zoster [Unknown]
  - Sepsis [Unknown]
  - Hypokalaemia [Unknown]
  - Anaemia [Unknown]

NARRATIVE: CASE EVENT DATE: 20171219
